FAERS Safety Report 13634527 (Version 1)
Quarter: 2017Q2

REPORT INFORMATION
  Report Type: Spontaneous
  Country: US (occurrence: US)
  Receive Date: 20170531
  Receipt Date: 20170531
  Transmission Date: 20170830
  Serious: No
  Sender: FDA-Public Use
  Company Number: US-ASTELLAS-1634727

PATIENT
  Sex: Male

DRUGS (1)
  1. TARCEVA [Suspect]
     Active Substance: ERLOTINIB HYDROCHLORIDE
     Indication: PRODUCT USED FOR UNKNOWN INDICATION
     Route: 048
     Dates: start: 20150430

REACTIONS (4)
  - Thermal burn [Not Recovered/Not Resolved]
  - Acne [Not Recovered/Not Resolved]
  - Decreased appetite [Not Recovered/Not Resolved]
  - Herpes zoster [Recovered/Resolved]
